FAERS Safety Report 9420714 (Version 1)
Quarter: 2013Q3

REPORT INFORMATION
  Report Type: Spontaneous
  Country: US (occurrence: US)
  Receive Date: 20130725
  Receipt Date: 20130725
  Transmission Date: 20140515
  Serious: No
  Sender: FDA-Public Use
  Company Number: US-ABBOTT-13P-163-1092516-00

PATIENT
  Sex: Male

DRUGS (1)
  1. SYNTHROID [Suspect]
     Indication: HYPOTHYROIDISM
     Dates: start: 2011, end: 2011

REACTIONS (6)
  - Adverse drug reaction [Unknown]
  - Malaise [Unknown]
  - Drug ineffective [Unknown]
  - Paradoxical drug reaction [Unknown]
  - Lethargy [Recovered/Resolved]
  - Asthenia [Recovered/Resolved]
